FAERS Safety Report 6215932-1 (Version None)
Quarter: 2009Q2

REPORT INFORMATION
  Report Type: 
  Country: None (occurrence: None)
  Receive Date: 20090605
  Receipt Date: 20090525
  Transmission Date: 20091009
  Serious: Yes (Other)
  Sender: FDA-Public Use
  Company Number: ES-BAYER-200921666GPV

PATIENT
  Age: 31 Year
  Sex: Female

DRUGS (2)
  1. ULTRAVIST 240 MG I/ML [Suspect]
     Indication: DRUG USE FOR UNKNOWN INDICATION
     Route: 042
     Dates: start: 20090504, end: 20090504
  2. GASTROGRAFIN [Suspect]
     Indication: DRUG USE FOR UNKNOWN INDICATION
     Route: 048
     Dates: start: 20090504, end: 20090504

REACTIONS (2)
  - BRONCHOSPASM [None]
  - RASH [None]
